FAERS Safety Report 8755835 (Version 3)
Quarter: 2013Q1

REPORT INFORMATION
  Report Type: Spontaneous
  Country: US (occurrence: US)
  Receive Date: 20120827
  Receipt Date: 20130111
  Transmission Date: 20140127
  Serious: No
  Sender: FDA-Public Use
  Company Number: US-009507513-1208USA009978

PATIENT
  Age: 21 Year
  Sex: Female
  Weight: 55.33 kg

DRUGS (2)
  1. NEXPLANON [Suspect]
     Indication: CONTRACEPTION
     Dosage: 68 MG/ 3 YEARS IMPLANT
     Route: 059
     Dates: start: 20120818, end: 20120818
  2. NEXPLANON [Suspect]
     Dosage: 68 MG/ 3 YEARS IMPLANT
     Route: 059
     Dates: start: 20120818

REACTIONS (2)
  - Device difficult to use [Unknown]
  - No adverse event [Unknown]
